FAERS Safety Report 9097260 (Version 3)
Quarter: 2013Q2

REPORT INFORMATION
  Report Type: Report from Study
  Country: DE (occurrence: DE)
  Receive Date: 20130212
  Receipt Date: 20130417
  Transmission Date: 20140414
  Serious: Yes (Hospitalization)
  Sender: FDA-Public Use
  Company Number: DE-B.I. PHARMACEUTICALS,INC./RIDGEFIELD-2013-DE-00313DE

PATIENT
  Age: 91 Year
  Sex: Female
  Weight: 79 kg

DRUGS (6)
  1. PRETREATMENT [Suspect]
     Indication: ATRIAL FIBRILLATION
  2. PRADAXA [Suspect]
     Indication: ATRIAL FIBRILLATION
     Dosage: 220 MG
     Route: 048
     Dates: start: 20121214
  3. PRADAXA [Suspect]
     Dosage: 220 MG
  4. AMIODARON [Concomitant]
     Indication: TACHYARRHYTHMIA
     Dosage: 200 MG
     Route: 048
     Dates: start: 2011, end: 2012
  5. RAMIPRIL [Concomitant]
     Indication: HYPERTENSION
     Dosage: 5 MG
     Route: 048
     Dates: end: 2010
  6. ASS [Concomitant]
     Indication: CORONARY ARTERY DISEASE
     Dosage: 100 MG
     Route: 048
     Dates: end: 2006

REACTIONS (4)
  - Gastroenteritis [Recovered/Resolved]
  - Dehydration [Recovered/Resolved]
  - Bronchopneumonia [Recovered/Resolved]
  - Diarrhoea [Recovered/Resolved]
